FAERS Safety Report 20532669 (Version 1)
Quarter: 2022Q1

REPORT INFORMATION
  Report Type: Spontaneous
  Country: US (occurrence: None)
  Receive Date: 20220228
  Receipt Date: 20220228
  Transmission Date: 20220423
  Serious: No
  Sender: FDA-Public Use
  Company Number: None

PATIENT

DRUGS (1)
  1. SUCCINYLCHOLINE CHLORIDE [Suspect]
     Active Substance: SUCCINYLCHOLINE CHLORIDE
     Dates: start: 20220223, end: 20220223

REACTIONS (3)
  - Therapeutic product effect incomplete [None]
  - Muscle rigidity [None]
  - Muscle tightness [None]

NARRATIVE: CASE EVENT DATE: 20220223
